FAERS Safety Report 12691306 (Version 2)
Quarter: 2018Q2

REPORT INFORMATION
  Report Type: Spontaneous
  Country: NL (occurrence: NL)
  Receive Date: 20160826
  Receipt Date: 20180601
  Transmission Date: 20180711
  Serious: Yes (Life-Threatening, Hospitalization, Other)
  Sender: FDA-Public Use
  Company Number: PHHY2016NL109897

PATIENT
  Age: 43 Year
  Sex: Male

DRUGS (5)
  1. LEVOCARNITINE. [Concomitant]
     Active Substance: LEVOCARNITINE
     Indication: HYPERAMMONAEMIA
     Route: 042
  2. OXAZEPAM. [Suspect]
     Active Substance: OXAZEPAM
     Indication: PRODUCT USED FOR UNKNOWN INDICATION
     Dosage: 1.1 G, UNK
     Route: 048
  3. LEVOCARNITINE. [Concomitant]
     Active Substance: LEVOCARNITINE
     Dosage: 1000 MG, TID
     Route: 048
  4. QUETIAPINE. [Suspect]
     Active Substance: QUETIAPINE
     Indication: PRODUCT USED FOR UNKNOWN INDICATION
     Dosage: 13 G, UNK
     Route: 048
  5. VALPROATE SODIUM. [Suspect]
     Active Substance: VALPROATE SODIUM
     Indication: PRODUCT USED FOR UNKNOWN INDICATION
     Dosage: 45 G, UNK
     Route: 048

REACTIONS (9)
  - Toxicity to various agents [Recovering/Resolving]
  - Coma [Recovered/Resolved]
  - Haemodynamic instability [Unknown]
  - Condition aggravated [Recovering/Resolving]
  - Hyperammonaemia [Recovered/Resolved]
  - Hepatic function abnormal [Recovered/Resolved]
  - Blood creatine phosphokinase increased [Unknown]
  - Electrocardiogram QT prolonged [Unknown]
  - Intentional overdose [Unknown]
